FAERS Safety Report 6339784-4 (Version None)
Quarter: 2009Q3

REPORT INFORMATION
  Report Type: 
  Country: None (occurrence: None)
  Receive Date: 20090903
  Receipt Date: 20090827
  Transmission Date: 20100115
  Serious: Yes (Death)
  Sender: FDA-Public Use
  Company Number: US-GILEAD-2009-0023959

PATIENT
  Sex: Female
  Weight: 78.088 kg

DRUGS (23)
  1. LETAIRIS [Suspect]
     Indication: PULMONARY ARTERIAL HYPERTENSION
     Route: 048
     Dates: start: 20081218
  2. OXYGEN [Concomitant]
  3. COREG [Concomitant]
  4. NORVASC [Concomitant]
  5. FLUTICASONE [Concomitant]
  6. HYDROCORTISONE [Concomitant]
  7. PULMICORT-100 [Concomitant]
  8. ADVAIR DISKUS 500/50 [Concomitant]
  9. DUONEB [Concomitant]
  10. LANTUS [Concomitant]
  11. AMARYL [Concomitant]
  12. METFORMIN HCL [Concomitant]
  13. PLAQUENIL [Concomitant]
  14. CELEXA [Concomitant]
  15. NEURONTIN [Concomitant]
  16. ULTRAM [Concomitant]
  17. PRILOSEC OTC [Concomitant]
  18. REGLAN [Concomitant]
  19. ASPIRIN [Concomitant]
  20. ADVIL [Concomitant]
  21. FOSAMAX [Concomitant]
  22. CALCIUM + D [Concomitant]
  23. MULTIVITAMIN-IRON [Concomitant]

REACTIONS (1)
  - DEATH [None]
